FAERS Safety Report 8075830-8 (Version None)
Quarter: 2012Q1

REPORT INFORMATION
  Report Type: 
  Country: None (occurrence: None)
  Receive Date: 20120127
  Receipt Date: 20120125
  Transmission Date: 20120608
  Serious: Yes (Death)
  Sender: FDA-Public Use
  Company Number: GR-PFIZER INC-2012012473

PATIENT
  Age: 74 Year
  Sex: Male

DRUGS (10)
  1. VANCOMYCIN HCL [Suspect]
     Indication: KLEBSIELLA INFECTION
  2. VANCOMYCIN HCL [Suspect]
     Indication: ACINETOBACTER INFECTION
  3. COLISTIN SULFATE [Suspect]
     Indication: ACINETOBACTER INFECTION
  4. TIGECYCLINE [Suspect]
     Indication: KLEBSIELLA INFECTION
     Dosage: UNK
  5. CIPROFLOXACIN [Suspect]
     Indication: ACINETOBACTER INFECTION
  6. COLISTIN SULFATE [Suspect]
     Indication: KLEBSIELLA INFECTION
  7. GENTAMICIN [Suspect]
     Indication: KLEBSIELLA INFECTION
  8. TIGECYCLINE [Suspect]
     Indication: ACINETOBACTER INFECTION
  9. CIPROFLOXACIN [Suspect]
     Indication: KLEBSIELLA INFECTION
  10. GENTAMICIN [Suspect]
     Indication: ACINETOBACTER INFECTION

REACTIONS (1)
  - DRUG INEFFECTIVE [None]
